FAERS Safety Report 21592715 (Version 1)
Quarter: 2022Q4

REPORT INFORMATION
  Report Type: Spontaneous
  Country: US (occurrence: US)
  Receive Date: 20221114
  Receipt Date: 20221114
  Transmission Date: 20230112
  Serious: Yes (Death, Other)
  Sender: FDA-Public Use
  Company Number: US-BAUSCH-BL-2022-025137

PATIENT
  Age: 92 Year
  Sex: Male

DRUGS (1)
  1. TARGRETIN [Suspect]
     Active Substance: BEXAROTENE
     Indication: Cutaneous lymphoma
     Route: 048

REACTIONS (6)
  - Prostate cancer [Fatal]
  - Cutaneous lymphoma [Unknown]
  - Condition aggravated [Unknown]
  - Lung neoplasm malignant [Unknown]
  - Blood calcium increased [Unknown]
  - Incorrect dose administered [Unknown]

NARRATIVE: CASE EVENT DATE: 20220101
